FAERS Safety Report 21670139 (Version 3)
Quarter: 2023Q1

REPORT INFORMATION
  Report Type: Report from Study
  Country: HU (occurrence: HU)
  Receive Date: 20221201
  Receipt Date: 20230330
  Transmission Date: 20230418
  Serious: Yes (Hospitalization)
  Sender: FDA-Public Use
  Company Number: HU-ABBVIE-4215779

PATIENT
  Age: 17 Year
  Sex: Female
  Weight: 72 kg

DRUGS (4)
  1. PLACEBO [Suspect]
     Active Substance: UNSPECIFIED INGREDIENT
     Indication: Dermatitis atopic
     Route: 048
     Dates: start: 20200714, end: 20201109
  2. UPADACITINIB [Suspect]
     Active Substance: UPADACITINIB
     Indication: Dermatitis atopic
     Route: 048
     Dates: start: 20201110
  3. BIODERMA ATODERM PP BAUME [Concomitant]
     Indication: Dry skin prophylaxis
     Dosage: AS NEEDED
     Route: 061
     Dates: start: 20200623
  4. DIENILLE [Concomitant]
     Indication: Contraception
     Route: 048
     Dates: start: 20220803

REACTIONS (1)
  - Cystitis [Recovered/Resolved]

NARRATIVE: CASE EVENT DATE: 20221110
